FAERS Safety Report 8975171 (Version 3)
Quarter: 2013Q3

REPORT INFORMATION
  Report Type: Report from Study
  Country: JP (occurrence: JP)
  Receive Date: 20121219
  Receipt Date: 20130701
  Transmission Date: 20140515
  Serious: No
  Sender: FDA-Public Use
  Company Number: JP-OTSUKA-JP-2012-17133

PATIENT
  Age: 84 Year
  Sex: Male
  Weight: 56.1 kg

DRUGS (21)
  1. SAMSCA [Suspect]
     Indication: FLUID RETENTION
     Dosage: 7.5 MG MILLIGRAM(S), QAM
     Route: 048
     Dates: start: 20121106, end: 20121115
  2. LYRICA [Concomitant]
     Dosage: 50 MG MILLIGRAM(S), DAILY DOSE
     Route: 048
     Dates: end: 20121108
  3. FEBURIC [Concomitant]
     Dosage: 10 MG MILLIGRAM(S), DAILY DOSE
     Route: 048
     Dates: end: 20121113
  4. FUROSEMIDE [Concomitant]
     Indication: CARDIAC FAILURE
     Dosage: 10 MG MILLIGRAM(S), DAILY DOSE
     Route: 048
     Dates: end: 20121106
  5. FUROSEMIDE [Concomitant]
     Dosage: 40 MG MILLIGRAM(S), DAILY DOSE
     Route: 048
     Dates: start: 20121114, end: 20121116
  6. FUROSEMIDE [Concomitant]
     Dosage: 20 MG MILLIGRAM(S), DAILY DOSE
     Route: 048
     Dates: start: 20121117
  7. NESP [Concomitant]
     Indication: NEPHROGENIC ANAEMIA
     Dosage: 60 MCG, QM
     Route: 058
  8. MOHRUS [Concomitant]
     Indication: BACK PAIN
     Dosage: 20 MG MILLIGRAM(S), DAILY DOSE
     Route: 061
  9. TENORMIN [Concomitant]
     Dosage: 25 MG MILLIGRAM(S), DAILY DOSE
     Route: 048
  10. METHYCOBAL [Concomitant]
     Indication: BACK PAIN
     Dosage: 1500 MCG, DAILY DOSE
     Route: 048
  11. AITANT [Concomitant]
     Dosage: 100 MG MILLIGRAM(S), DAILY DOSE
     Route: 048
  12. NEUROTROPIN [Concomitant]
     Dosage: 12 IU, DAILY DOSE
     Route: 048
  13. LANSOPRAZOLE [Concomitant]
     Dosage: 15 MG MILLIGRAM(S), DAILY DOSE
     Route: 048
  14. TAMSULOSIN HYDROCHLORIDE [Concomitant]
     Dosage: 0.2 MG MILLIGRAM(S), DAILY DOSE
     Route: 048
  15. LASIX [Concomitant]
     Indication: CARDIAC FAILURE
     Dosage: 40 MG MILLIGRAM(S), DAILY DOSE
     Route: 042
     Dates: start: 20121106, end: 20121106
  16. LASIX [Concomitant]
     Dosage: 20 MG MILLIGRAM(S), DAILY DOSE
     Route: 042
     Dates: start: 20121108, end: 20121108
  17. ANTOBRON [Concomitant]
     Dosage: 30 MG MILLIGRAM(S), DAILY DOSE
     Route: 048
     Dates: start: 20121106, end: 20121108
  18. HEPARIN [Concomitant]
     Indication: THROMBOSIS PROPHYLAXIS
     Dosage: 8 KIU IU(1000S), DAILY DOSE
     Route: 042
     Dates: start: 20121106, end: 20121109
  19. SULBACILLIN [Concomitant]
     Indication: PNEUMONIA
     Dosage: 3 G GRAM(S), DAILY DOSE
     Route: 042
     Dates: start: 20121106, end: 20121112
  20. AMBROXOL HYDROCHLORIDE [Concomitant]
     Dosage: 45 MG MILLIGRAM(S), DAILY DOSE
     Route: 048
     Dates: start: 20121107
  21. AUGMENTIN [Concomitant]
     Dosage: 750 MG MILLIGRAM(S), DAILY DOSE
     Route: 048
     Dates: start: 20121113, end: 20121120

REACTIONS (1)
  - Hyperuricaemia [Unknown]
